FAERS Safety Report 5212412-7 (Version None)
Quarter: 2007Q1

REPORT INFORMATION
  Report Type: 
  Country: None (occurrence: None)
  Receive Date: 20070118
  Receipt Date: 20070108
  Transmission Date: 20070707
  Serious: Yes (Other)
  Sender: FDA-Public Use
  Company Number: US-PFIZER INC-2007002965

PATIENT
  Sex: Female
  Weight: 59.9 kg

DRUGS (5)
  1. CHANTIX [Suspect]
     Indication: EX-SMOKER
     Dates: start: 20061228, end: 20070105
  2. VITAMINS [Concomitant]
  3. XANAX [Concomitant]
  4. LEXAPRO [Concomitant]
  5. NICOTINE [Concomitant]
     Route: 062

REACTIONS (9)
  - BEDRIDDEN [None]
  - BLOOD GLUCOSE DECREASED [None]
  - DECREASED APPETITE [None]
  - FATIGUE [None]
  - HEADACHE [None]
  - HOT FLUSH [None]
  - HYPERSOMNIA [None]
  - LETHARGY [None]
  - THINKING ABNORMAL [None]
